FAERS Safety Report 12252351 (Version 3)
Quarter: 2016Q2

REPORT INFORMATION
  Report Type: Spontaneous
  Country: JP (occurrence: JP)
  Receive Date: 20160411
  Receipt Date: 20160429
  Transmission Date: 20160815
  Serious: Yes (Hospitalization)
  Sender: FDA-Public Use
  Company Number: JP-009507513-1604JPN006260

PATIENT
  Age: 53 Year
  Sex: Female

DRUGS (3)
  1. GLACTIV [Suspect]
     Active Substance: SITAGLIPTIN
     Indication: TYPE 2 DIABETES MELLITUS
     Dosage: 100 MG, QD
     Route: 048
  2. BEVACIZUMAB [Concomitant]
     Active Substance: BEVACIZUMAB
     Indication: CHEMOTHERAPY
     Dosage: ABOUT 10 MG/KG ON DAY 1 AND DAY 15, CYCLICAL (ONE CYCLE EVERY 28 DAYS)
     Route: 042
  3. PACLITAXEL. [Concomitant]
     Active Substance: PACLITAXEL
     Indication: CHEMOTHERAPY
     Dosage: ABOUT 90 MG/M2 ON DAY 1, DAY 8 AND DAY 15, CYCLICAL (ONE CYCLE EVERY 28 DAYS)
     Route: 042

REACTIONS (1)
  - Septic embolus [Unknown]
